FAERS Safety Report 9466974 (Version 3)
Quarter: 2013Q4

REPORT INFORMATION
  Report Type: Spontaneous
  Country: US (occurrence: US)
  Receive Date: 20130820
  Receipt Date: 20131114
  Transmission Date: 20140711
  Serious: Yes (Other)
  Sender: FDA-Public Use
  Company Number: US-GLAXOSMITHKLINE-A0817573A

PATIENT
  Age: 61 Year
  Sex: Male

DRUGS (1)
  1. AVANDIA [Suspect]
     Indication: DIABETES MELLITUS
     Dosage: 8MG TWICE PER DAY
     Route: 048
     Dates: start: 200211, end: 200705

REACTIONS (6)
  - Cerebrovascular accident [Unknown]
  - Stent placement [Unknown]
  - Cardiac pacemaker insertion [Unknown]
  - Cardiac disorder [Unknown]
  - Cardiovascular disorder [Unknown]
  - Cardiac failure congestive [Unknown]
